FAERS Safety Report 20458007 (Version 1)
Quarter: 2022Q1

REPORT INFORMATION
  Report Type: Report from Study
  Country: CO (occurrence: CO)
  Receive Date: 20220211
  Receipt Date: 20220211
  Transmission Date: 20220423
  Serious: Yes (Hospitalization, Other)
  Sender: FDA-Public Use
  Company Number: CO-ABBVIE-22K-036-4273961-00

PATIENT
  Age: 77 Year
  Sex: Female
  Weight: 83 kg

DRUGS (8)
  1. HUMIRA [Suspect]
     Active Substance: ADALIMUMAB
     Indication: Colitis ulcerative
     Route: 058
     Dates: end: 20211227
  2. HUMIRA [Suspect]
     Active Substance: ADALIMUMAB
     Indication: Colitis ulcerative
     Route: 058
     Dates: start: 20111116
  3. XARELTO [Concomitant]
     Active Substance: RIVAROXABAN
     Indication: Thrombosis prophylaxis
     Dosage: EACH 24 HOURS
     Route: 048
  4. MESALAMINE [Concomitant]
     Active Substance: MESALAMINE
     Indication: Colitis ulcerative
     Route: 048
  5. LEVOTHYROXINE [Concomitant]
     Active Substance: LEVOTHYROXINE
     Indication: Hypothyroidism
     Dosage: EACH 24 HOURS
     Route: 048
  6. ATORVASTATIN [Concomitant]
     Active Substance: ATORVASTATIN
     Indication: Hypertension
     Dosage: EACH 24 HOURS
     Route: 048
  7. CARBAMAZEPINE [Concomitant]
     Active Substance: CARBAMAZEPINE
     Indication: Product used for unknown indication
     Dosage: EACH 24 HOURS
     Route: 048
  8. RIVAROXABAN [Concomitant]
     Active Substance: RIVAROXABAN
     Indication: Thrombosis prophylaxis
     Dosage: EACH 24 HOURS
     Route: 048

REACTIONS (10)
  - Small intestinal stenosis [Recovered/Resolved]
  - Cerebral disorder [Recovered/Resolved]
  - Cardiomegaly [Recovering/Resolving]
  - Anal haemorrhage [Recovering/Resolving]
  - Pulmonary oedema [Recovered/Resolved]
  - Peripheral swelling [Recovering/Resolving]
  - Arrhythmia [Recovering/Resolving]
  - Ataxia [Recovering/Resolving]
  - Exposure to SARS-CoV-2 [Recovered/Resolved]
  - Asymptomatic COVID-19 [Recovered/Resolved]

NARRATIVE: CASE EVENT DATE: 20210801
